FAERS Safety Report 5397444-0 (Version None)
Quarter: 2007Q3

REPORT INFORMATION
  Report Type: 
  Country: None (occurrence: None)
  Receive Date: 20070723
  Receipt Date: 20070723
  Transmission Date: 20080115
  Serious: Yes (Other)
  Sender: FDA-Public Use
  Company Number: None

PATIENT
  Age: 30 Year
  Sex: Male
  Weight: 72.5755 kg

DRUGS (1)
  1. SELEGILINE HCL [Suspect]
     Indication: MAJOR DEPRESSION
     Dosage: 5 MG QD PO
     Route: 048
     Dates: start: 20041001, end: 20041201

REACTIONS (1)
  - MYOCLONUS [None]
